FAERS Safety Report 9722743 (Version 1)
Quarter: 2013Q4

REPORT INFORMATION
  Report Type: Spontaneous
  Country: FR (occurrence: FR)
  Receive Date: 20131202
  Receipt Date: 20131202
  Transmission Date: 20140711
  Serious: Yes (Hospitalization)
  Sender: FDA-Public Use
  Company Number: FR-SA-2013SA121862

PATIENT
  Age: 85 Year
  Sex: Male

DRUGS (11)
  1. STILNOX [Suspect]
     Indication: INSOMNIA
     Route: 048
  2. ATARAX [Suspect]
     Indication: ANXIETY
     Route: 048
  3. INEXIUM [Concomitant]
     Route: 048
  4. MODOPAR [Concomitant]
     Route: 048
  5. NITRIDERM TTS [Concomitant]
     Dosage: FORM: PATCH
     Route: 003
  6. KARDEGIC [Concomitant]
     Route: 048
  7. LASILIX [Concomitant]
     Route: 048
  8. TRANSIPEG [Concomitant]
     Dosage: DOSE:2 UNIT(S)
     Route: 048
  9. FUMAFER [Concomitant]
     Dosage: DOSE:1 UNIT(S)
     Route: 048
  10. BRICANYL [Concomitant]
     Dosage: STRENGTH: 5 MG/2 ML DOSE:1 PUFF(S)
     Route: 055
  11. PULMICORT [Concomitant]
     Dosage: DOSE:1 PUFF(S)
     Route: 055

REACTIONS (3)
  - Fall [Recovered/Resolved]
  - Inappropriate schedule of drug administration [Unknown]
  - Femoral neck fracture [Recovered/Resolved]
